FAERS Safety Report 7522580-X (Version None)
Quarter: 2011Q2

REPORT INFORMATION
  Report Type: 
  Country: None (occurrence: None)
  Receive Date: 20110525
  Receipt Date: 20110518
  Transmission Date: 20111010
  Serious: Yes (Other)
  Sender: FDA-Public Use
  Company Number: NSR_00235_2011

PATIENT
  Sex: Female
  Weight: 188 kg

DRUGS (3)
  1. FLUOXETINE HCL [Concomitant]
  2. WELLBUTRIN [Concomitant]
  3. FLUOXETINE [Suspect]
     Indication: DEPRESSION
     Dosage: (40 MG BID ORAL)
     Route: 048
     Dates: start: 20110501

REACTIONS (5)
  - DRUG EFFECT DECREASED [None]
  - PRODUCT QUALITY ISSUE [None]
  - DEPRESSED MOOD [None]
  - APATHY [None]
  - BEDRIDDEN [None]
